FAERS Safety Report 9760134 (Version 2)
Quarter: 2013Q4

REPORT INFORMATION
  Report Type: Spontaneous
  Country: MY (occurrence: MY)
  Receive Date: 20131216
  Receipt Date: 20131216
  Transmission Date: 20140711
  Serious: Yes (Hospitalization)
  Sender: FDA-Public Use
  Company Number: MY-PFIZER INC-2013356174

PATIENT
  Sex: Female

DRUGS (1)
  1. NORVASC [Suspect]

REACTIONS (5)
  - Food poisoning [Unknown]
  - Weight increased [Unknown]
  - Local swelling [Recovered/Resolved]
  - Blood pressure increased [Unknown]
  - Inappropriate schedule of drug administration [Unknown]
